FAERS Safety Report 9747280 (Version 2)
Quarter: 2013Q4

REPORT INFORMATION
  Report Type: Report from Study
  Country: CZ (occurrence: CZ)
  Receive Date: 20131212
  Receipt Date: 20131221
  Transmission Date: 20140711
  Serious: Yes (Death)
  Sender: FDA-Public Use
  Company Number: CZ-ROCHE-1318252

PATIENT
  Sex: Female

DRUGS (2)
  1. RANIBIZUMAB [Suspect]
     Indication: PRODUCT USED FOR UNKNOWN INDICATION
     Route: 050
     Dates: start: 20090518
  2. RANIBIZUMAB [Suspect]
     Route: 050
     Dates: start: 20090716, end: 20090716

REACTIONS (2)
  - Cardiac tamponade [Fatal]
  - Aortic stenosis [Fatal]
